FAERS Safety Report 21244200 (Version 1)
Quarter: 2022Q3

REPORT INFORMATION
  Report Type: Spontaneous
  Country: IN (occurrence: IN)
  Receive Date: 20220823
  Receipt Date: 20220823
  Transmission Date: 20221027
  Serious: Yes (Death)
  Sender: FDA-Public Use
  Company Number: IN-IGSA-BIG0020078

PATIENT
  Age: 52 Year
  Sex: Female

DRUGS (1)
  1. HUMAN IMMUNOGLOBULIN G [Suspect]
     Active Substance: HUMAN IMMUNOGLOBULIN G
     Indication: Acute motor-sensory axonal neuropathy
     Dosage: 2 GRAM PER KILOGRAM, UNKNOWN
     Route: 065

REACTIONS (3)
  - Rectal haemorrhage [Fatal]
  - Colitis ulcerative [Fatal]
  - Hypovolaemic shock [Fatal]
